FAERS Safety Report 23931255 (Version 2)
Quarter: 2024Q4

REPORT INFORMATION
  Report Type: Spontaneous
  Country: US (occurrence: US)
  Receive Date: 20240603
  Receipt Date: 20241231
  Transmission Date: 20250115
  Serious: Yes (Hospitalization, Other)
  Sender: ZYDUS PHARM
  Company Number: US-CADILA HEALTHCARE LIMITED-US-ZYDUS-107634

PATIENT

DRUGS (10)
  1. BUPROPION [Interacting]
     Active Substance: BUPROPION
     Indication: Major depression
     Dosage: 150 MILLIGRAM, ONCE A DAY
     Route: 065
  2. DAPSONE [Suspect]
     Active Substance: DAPSONE
     Indication: Prophylaxis
     Dosage: 100 MILLIGRAM, ONCE A DAY
     Route: 065
  3. PAROXETINE [Interacting]
     Active Substance: PAROXETINE
     Indication: Major depression
     Dosage: 20 MILLIGRAM, ONCE A DAY
     Route: 065
  4. METHYLENE BLUE [Interacting]
     Active Substance: METHYLENE BLUE
     Indication: Methaemoglobinaemia
     Dosage: 100 MILLIGRAM
     Route: 042
  5. RITUXIMAB [Concomitant]
     Active Substance: RITUXIMAB
     Indication: Diffuse large B-cell lymphoma
     Dosage: UNK
     Route: 065
  6. CYTARABINE [Concomitant]
     Active Substance: CYTARABINE
     Indication: Diffuse large B-cell lymphoma
     Dosage: UNK
     Route: 065
  7. OXALIPLATIN [Concomitant]
     Active Substance: OXALIPLATIN
     Indication: Diffuse large B-cell lymphoma
     Dosage: UNK
     Route: 065
  8. LORAZEPAM [Concomitant]
     Active Substance: LORAZEPAM
     Indication: Anxiety
     Dosage: UNK
     Route: 065
  9. LEVOTHYROXINE SODIUM [Concomitant]
     Active Substance: LEVOTHYROXINE SODIUM
     Indication: Hypothyroidism
     Dosage: UNK
     Route: 065
  10. DEXAMETHASONE [Concomitant]
     Active Substance: DEXAMETHASONE
     Indication: Diffuse large B-cell lymphoma
     Dosage: UNK
     Route: 065

REACTIONS (3)
  - Serotonin syndrome [Recovered/Resolved]
  - Drug interaction [Recovered/Resolved]
  - Methaemoglobinaemia [Recovered/Resolved]
